FAERS Safety Report 5485555-0 (Version None)
Quarter: 2007Q4

REPORT INFORMATION
  Report Type: 
  Country: None (occurrence: None)
  Receive Date: 20071015
  Receipt Date: 20071002
  Transmission Date: 20080405
  Serious: Yes (Death, Hospitalization)
  Sender: FDA-Public Use
  Company Number: LB-GENENTECH-249259

PATIENT
  Age: 25 Year
  Sex: Female
  Weight: 71 kg

DRUGS (2)
  1. AVASTIN [Suspect]
     Indication: BRAIN NEOPLASM
     Dosage: 300 MG, Q2W
     Route: 042
     Dates: start: 20061215, end: 20070815
  2. TEMODAL [Concomitant]
     Indication: DRUG USE FOR UNKNOWN INDICATION
     Dates: start: 20061215, end: 20070715

REACTIONS (5)
  - IMPAIRED HEALING [None]
  - PERITONITIS [None]
  - SEPTIC SHOCK [None]
  - WOUND DEHISCENCE [None]
  - WOUND INFECTION [None]
